FAERS Safety Report 25388868 (Version 1)
Quarter: 2025Q2

REPORT INFORMATION
  Report Type: Report from Study
  Country: BR (occurrence: BR)
  Receive Date: 20250603
  Receipt Date: 20250603
  Transmission Date: 20250717
  Serious: No
  Sender: TAKEDA
  Company Number: BR-TAKEDA-2024TUS100603

PATIENT
  Age: 38 Year
  Sex: Female
  Weight: 66 kg

DRUGS (3)
  1. HUMAN IMMUNOGLOBULIN G\HYALURONIDASE RECOMBINANT HUMAN [Suspect]
     Active Substance: HUMAN IMMUNOGLOBULIN G\HYALURONIDASE (HUMAN RECOMBINANT)
     Indication: Primary immunodeficiency syndrome
  2. HUMAN IMMUNOGLOBULIN G\HYALURONIDASE RECOMBINANT HUMAN [Suspect]
     Active Substance: HUMAN IMMUNOGLOBULIN G\HYALURONIDASE (HUMAN RECOMBINANT)
     Indication: Immunodeficiency
     Dosage: 25 GRAM, MONTHLY
     Dates: start: 20240829
  3. HUMAN IMMUNOGLOBULIN G\HYALURONIDASE RECOMBINANT HUMAN [Suspect]
     Active Substance: HUMAN IMMUNOGLOBULIN G\HYALURONIDASE (HUMAN RECOMBINANT)

REACTIONS (16)
  - Thermal burn [Recovered/Resolved]
  - Skin discolouration [Recovered/Resolved]
  - Fear [Recovered/Resolved]
  - Visual impairment [Recovered/Resolved]
  - Inappropriate schedule of product administration [Not Recovered/Not Resolved]
  - Rash macular [Recovered/Resolved]
  - Application site discomfort [Recovered/Resolved]
  - Pallor [Recovered/Resolved]
  - Hyperhidrosis [Recovered/Resolved]
  - Pruritus [Recovered/Resolved]
  - Infusion related reaction [Unknown]
  - Injection site discomfort [Not Recovered/Not Resolved]
  - Blood pressure decreased [Recovered/Resolved]
  - Dizziness [Unknown]
  - Infusion site pain [Unknown]
  - Infusion site discomfort [Unknown]

NARRATIVE: CASE EVENT DATE: 20250520
